FAERS Safety Report 18671410 (Version 40)
Quarter: 2025Q1

REPORT INFORMATION
  Report Type: Report from Study
  Country: CA (occurrence: CA)
  Receive Date: 20201228
  Receipt Date: 20250306
  Transmission Date: 20250409
  Serious: Yes (Other)
  Sender: TAKEDA
  Company Number: CA-SHIRE-CA201926779

PATIENT
  Sex: Female
  Weight: 48 kg

DRUGS (24)
  1. TEDUGLUTIDE [Suspect]
     Active Substance: TEDUGLUTIDE
     Indication: Short-bowel syndrome
     Dosage: 2.8 MILLIGRAM, QD
     Dates: start: 20180108, end: 20221206
  2. TEDUGLUTIDE [Suspect]
     Active Substance: TEDUGLUTIDE
     Dosage: 2.3 MILLIGRAM, QD
  3. TEDUGLUTIDE [Suspect]
     Active Substance: TEDUGLUTIDE
     Dosage: 2.8 MILLIGRAM, QD
  4. TEDUGLUTIDE [Suspect]
     Active Substance: TEDUGLUTIDE
     Dosage: UNK UNK, QD
  5. TEDUGLUTIDE [Suspect]
     Active Substance: TEDUGLUTIDE
     Dosage: 2.8 MILLIGRAM, QD
  6. TEDUGLUTIDE [Suspect]
     Active Substance: TEDUGLUTIDE
     Dosage: UNK UNK, QD
  7. TEDUGLUTIDE [Suspect]
     Active Substance: TEDUGLUTIDE
     Dosage: 2.8 MILLIGRAM, QD
  8. TEDUGLUTIDE [Suspect]
     Active Substance: TEDUGLUTIDE
     Dosage: 2.8 MILLIGRAM, QD
  9. METHOTREXATE [Suspect]
     Active Substance: METHOTREXATE
     Indication: Product used for unknown indication
  10. OTEZLA [Suspect]
     Active Substance: APREMILAST
     Indication: Arthritis
  11. LANSOPRAZOLE [Concomitant]
     Active Substance: LANSOPRAZOLE
  12. CALCIUM [Concomitant]
     Active Substance: CALCIUM
     Dosage: 50 MILLIGRAM, BID
  13. INSULIN NOS [Concomitant]
     Active Substance: INSULIN NOS
     Dosage: 10 INTERNATIONAL UNIT, QD
  14. IMODIUM [Concomitant]
     Active Substance: LOPERAMIDE HYDROCHLORIDE
  15. MUPIROCIN [Concomitant]
     Active Substance: MUPIROCIN
     Route: 061
  16. BETAMETHASONE DIPROPIONATE\CALCIPOTRIENE MONOHYDRATE [Concomitant]
     Active Substance: BETAMETHASONE DIPROPIONATE\CALCIPOTRIENE MONOHYDRATE
     Dosage: 60 GRAM, QD
     Route: 061
  17. CLOBETASOL [Concomitant]
     Active Substance: CLOBETASOL
     Indication: Catheter management
     Route: 061
  18. VITAMIN D [Concomitant]
     Active Substance: VITAMIN D NOS
     Indication: Product used for unknown indication
  19. VITAMIN D [Concomitant]
     Active Substance: VITAMIN D NOS
  20. VITAMIN D [Concomitant]
     Active Substance: VITAMIN D NOS
     Dosage: 5000 INTERNATIONAL UNIT, 3/WEEK
  21. PROLIA [Concomitant]
     Active Substance: DENOSUMAB
     Indication: Bone density abnormal
     Dosage: 60 MILLIGRAM, Q6MONTHS
     Dates: start: 20200603
  22. LEFLUNOMIDE [Concomitant]
     Active Substance: LEFLUNOMIDE
     Dosage: 10 MILLIGRAM, QD
     Dates: start: 20200902
  23. FOLIC ACID [Concomitant]
     Active Substance: FOLIC ACID
  24. SULFASALAZINE [Concomitant]
     Active Substance: SULFASALAZINE

REACTIONS (66)
  - Psoriatic arthropathy [Unknown]
  - Skin cancer [Unknown]
  - Poor quality sleep [Not Recovered/Not Resolved]
  - Stress [Not Recovered/Not Resolved]
  - Pain in extremity [Not Recovered/Not Resolved]
  - Animal scratch [Not Recovered/Not Resolved]
  - Ligament sprain [Not Recovered/Not Resolved]
  - Alopecia [Not Recovered/Not Resolved]
  - Abdominal distension [Unknown]
  - Abdominal pain upper [Not Recovered/Not Resolved]
  - Fatigue [Not Recovered/Not Resolved]
  - COVID-19 [Recovering/Resolving]
  - Urinary tract infection [Recovering/Resolving]
  - Groin pain [Unknown]
  - Oropharyngeal pain [Unknown]
  - Memory impairment [Unknown]
  - Disturbance in attention [Unknown]
  - Muscle spasms [Unknown]
  - Discomfort [Unknown]
  - Fall [Unknown]
  - Joint injury [Unknown]
  - Blood glucose increased [Unknown]
  - Hunger [Unknown]
  - Weight increased [Not Recovered/Not Resolved]
  - Neck pain [Unknown]
  - Nervousness [Unknown]
  - Paraesthesia [Not Recovered/Not Resolved]
  - Abdominal discomfort [Unknown]
  - Psoriasis [Unknown]
  - Weight decreased [Unknown]
  - Eating disorder [Unknown]
  - Arthritis [Not Recovered/Not Resolved]
  - Asthenia [Unknown]
  - Joint swelling [Unknown]
  - Cardiac disorder [Not Recovered/Not Resolved]
  - Salivary gland calculus [Not Recovered/Not Resolved]
  - Malaise [Not Recovered/Not Resolved]
  - Neck mass [Unknown]
  - Gait disturbance [Not Recovered/Not Resolved]
  - Injection site discharge [Not Recovered/Not Resolved]
  - Depression [Not Recovered/Not Resolved]
  - Frequent bowel movements [Recovering/Resolving]
  - Eructation [Not Recovered/Not Resolved]
  - Cystitis [Unknown]
  - Stoma site pain [Unknown]
  - Blood glucose decreased [Recovering/Resolving]
  - Thyroid disorder [Not Recovered/Not Resolved]
  - Emotional distress [Unknown]
  - Gastrointestinal sounds abnormal [Unknown]
  - Product dose omission in error [Unknown]
  - Rash [Unknown]
  - Headache [Unknown]
  - Flatulence [Not Recovered/Not Resolved]
  - Insomnia [Not Recovered/Not Resolved]
  - Vomiting [Unknown]
  - Abdominal pain [Unknown]
  - Gastrointestinal stoma output increased [Unknown]
  - Diarrhoea [Not Recovered/Not Resolved]
  - Procedural pain [Not Recovered/Not Resolved]
  - Device use confusion [Recovering/Resolving]
  - Wrong technique in device usage process [Recovering/Resolving]
  - Product dose omission issue [Unknown]
  - Anxiety [Not Recovered/Not Resolved]
  - Dyspnoea [Not Recovered/Not Resolved]
  - Nausea [Unknown]
  - Cough [Not Recovered/Not Resolved]

NARRATIVE: CASE EVENT DATE: 20190101
